FAERS Safety Report 7402530-7 (Version None)
Quarter: 2011Q1

REPORT INFORMATION
  Report Type: 
  Country: None (occurrence: None)
  Receive Date: 20110331
  Receipt Date: 20110315
  Transmission Date: 20110831
  Serious: Yes (Other)
  Sender: FDA-Public Use
  Company Number: 025693

PATIENT
  Sex: Female
  Weight: 83 kg

DRUGS (5)
  1. NEUPRO [Suspect]
     Indication: PARKINSON'S DISEASE
     Dosage: (8 MG QD  TRANSDERMAL), (8 MG QD TRANSDERMAL)
     Route: 062
     Dates: start: 20090101, end: 20101001
  2. CARBIDOPA + LEVODOPA [Concomitant]
  3. AZILECT [Concomitant]
  4. TASMAR [Concomitant]
  5. AMANTADINE HCL [Concomitant]

REACTIONS (2)
  - DRUG EFFECT DECREASED [None]
  - CYST [None]
